FAERS Safety Report 7891607-8 (Version None)
Quarter: 2011Q4

REPORT INFORMATION
  Report Type: 
  Country: None (occurrence: None)
  Receive Date: 20111103
  Receipt Date: 20110808
  Transmission Date: 20120403
  Serious: Yes (Other)
  Sender: FDA-Public Use
  Company Number: US-AMGEN-USASP2011031621

PATIENT
  Age: 62 Year
  Sex: Female
  Weight: 77.098 kg

DRUGS (1)
  1. ENBREL [Suspect]
     Indication: PSORIASIS
     Dosage: 50 MG, 2 TIMES/WK
     Dates: start: 20110512

REACTIONS (4)
  - PARAESTHESIA [None]
  - CONTUSION [None]
  - PSORIASIS [None]
  - INJECTION SITE HAEMATOMA [None]
